FAERS Safety Report 14381382 (Version 1)
Quarter: 2018Q1

REPORT INFORMATION
  Report Type: Spontaneous
  Country: CN (occurrence: CN)
  Receive Date: 20180112
  Receipt Date: 20180112
  Transmission Date: 20180509
  Serious: Yes (Other)
  Sender: FDA-Public Use
  Company Number: CN-UCBSA-2018001069

PATIENT
  Sex: Male

DRUGS (2)
  1. PHENOBARBITAL. [Concomitant]
     Active Substance: PHENOBARBITAL
     Indication: EPILEPSY
     Dosage: UNK UNK, 2X/DAY (BID)
     Route: 048
  2. KEPPRA [Suspect]
     Active Substance: LEVETIRACETAM
     Indication: EPILEPSY
     Dosage: DOSAGE OF 1ML IN THE MORNING AND 1.25ML IN THE EVENING, 2X/DAY (BID)
     Route: 048

REACTIONS (2)
  - Pneumonia [Unknown]
  - Pyrexia [Unknown]
